FAERS Safety Report 7292248-6 (Version None)
Quarter: 2010Q4

REPORT INFORMATION
  Report Type: 
  Country: None (occurrence: None)
  Receive Date: 20101223
  Receipt Date: 20101019
  Transmission Date: 20110411
  Serious: Yes (Life-Threatening, Hospitalization)
  Sender: FDA-Public Use
  Company Number: 2010SP055787

PATIENT
  Age: 46 Year
  Sex: Male

DRUGS (7)
  1. NOXAFIL [Suspect]
     Indication: FUNGAL INFECTION
     Dosage: 400 MG; TID; PO
     Route: 048
  2. AMBISOME [Concomitant]
  3. ACYCLOVIR [Concomitant]
  4. AZITHROMYCIN [Concomitant]
  5. AZACTAM [Concomitant]
  6. BUDESONIDE [Concomitant]
  7. CIPROFLOXACIN [Concomitant]

REACTIONS (1)
  - THERAPEUTIC PRODUCT INEFFECTIVE [None]
